FAERS Safety Report 14471609 (Version 1)
Quarter: 2018Q1

REPORT INFORMATION
  Report Type: Spontaneous
  Country: CA (occurrence: US)
  Receive Date: 20180131
  Receipt Date: 20180131
  Transmission Date: 20180509
  Serious: Yes (Hospitalization, Other)
  Sender: FDA-Public Use
  Company Number: CA-BAYER-2018-018008

PATIENT
  Sex: Female

DRUGS (2)
  1. MIRALAX [Suspect]
     Active Substance: POLYETHYLENE GLYCOL 3350
     Indication: GASTROINTESTINAL DISORDER
     Dosage: UNK
     Dates: start: 201710, end: 201710
  2. IDELALISIB [Suspect]
     Active Substance: IDELALISIB
     Indication: CHRONIC LYMPHOCYTIC LEUKAEMIA
     Dosage: 100 MG, BID
     Route: 048
     Dates: start: 20150901, end: 201710

REACTIONS (6)
  - Diarrhoea [Recovered/Resolved]
  - Head and neck cancer [None]
  - Gastrointestinal motility disorder [Recovered/Resolved]
  - Product use in unapproved indication [Recovered/Resolved]
  - Nasal cavity cancer [None]
  - Extra dose administered [Recovered/Resolved]

NARRATIVE: CASE EVENT DATE: 201710
